FAERS Safety Report 9679127 (Version 3)
Quarter: 2014Q1

REPORT INFORMATION
  Report Type: Spontaneous
  Country: BR (occurrence: BR)
  Receive Date: 20131108
  Receipt Date: 20140103
  Transmission Date: 20141002
  Serious: Yes (Other)
  Sender: FDA-Public Use
  Company Number: CHPA2013BR015369

PATIENT
  Age: 60 Year
  Sex: Female
  Weight: 50 kg

DRUGS (7)
  1. PRIVINA [Suspect]
     Indication: DYSPNOEA
     Dosage: 2-3 DRP, QD
     Route: 045
  2. PRIVINA [Suspect]
     Indication: NASAL CONGESTION
  3. PRIVINA [Suspect]
     Indication: OFF LABEL USE
  4. AGASTEN [Suspect]
     Indication: RHINITIS ALLERGIC
     Dosage: 2 DF, QD
     Route: 048
  5. LOSARTAN [Concomitant]
     Indication: HYPERTENSION
     Dosage: 2 DF, QD
     Route: 048
  6. HYDROCHLOROTHIAZIDE [Concomitant]
     Indication: DIURETIC THERAPY
     Dosage: 1 DF, QD
     Route: 048
  7. APRESOLINA [Concomitant]
     Indication: HYPERTENSION
     Dosage: 1 DF, QD
     Route: 048
     Dates: start: 20131018

REACTIONS (4)
  - Diabetes mellitus [Not Recovered/Not Resolved]
  - Allergy to chemicals [Unknown]
  - Disease recurrence [Recovered/Resolved]
  - Influenza [Not Recovered/Not Resolved]
